APPROVED DRUG PRODUCT: CETIRIZINE HYDROCHLORIDE ALLERGY
Active Ingredient: CETIRIZINE HYDROCHLORIDE
Strength: 10MG
Dosage Form/Route: CAPSULE;ORAL
Application: A207235 | Product #001
Applicant: APOTEX INC
Approved: Aug 12, 2016 | RLD: No | RS: No | Type: DISCN